FAERS Safety Report 14471233 (Version 1)
Quarter: 2018Q1

REPORT INFORMATION
  Report Type: Spontaneous
  Country: US (occurrence: US)
  Receive Date: 20180131
  Receipt Date: 20180131
  Transmission Date: 20180509
  Serious: No
  Sender: FDA-Public Use
  Company Number: US-PRAGMA PHARMACEUTICALS, LLC-2017PRG00048

PATIENT

DRUGS (1)
  1. KEFLEX [Suspect]
     Active Substance: CEPHALEXIN

REACTIONS (1)
  - Hypersensitivity [Unknown]
